FAERS Safety Report 25591932 (Version 2)
Quarter: 2025Q3

REPORT INFORMATION
  Report Type: Spontaneous
  Country: EU (occurrence: EU)
  Receive Date: 20250722
  Receipt Date: 20250815
  Transmission Date: 20251021
  Serious: Yes (Life-Threatening, Hospitalization)
  Sender: BAUSCH AND LOMB
  Company Number: EU-MLMSERVICE-20250707-PI568481-00217-1

PATIENT
  Age: 56 Year
  Sex: Female

DRUGS (2)
  1. METFORMIN [Suspect]
     Active Substance: METFORMIN HYDROCHLORIDE
     Indication: Type 2 diabetes mellitus
     Route: 065
  2. CANDESARTAN [Concomitant]
     Active Substance: CANDESARTAN
     Indication: Hypertension

REACTIONS (15)
  - Leukocytosis [Unknown]
  - Neutrophilia [Unknown]
  - Acute kidney injury [Recovering/Resolving]
  - Loss of consciousness [Recovering/Resolving]
  - Ketonuria [Recovering/Resolving]
  - Chronic kidney disease [Recovering/Resolving]
  - Haemodynamic instability [Recovering/Resolving]
  - Infection [Recovering/Resolving]
  - Hyperkalaemia [Recovering/Resolving]
  - Toxicity to various agents [Recovering/Resolving]
  - Hyperglycaemia [Recovering/Resolving]
  - Liver disorder [Recovering/Resolving]
  - Anuria [Unknown]
  - C-reactive protein increased [Recovering/Resolving]
  - Lactic acidosis [Recovering/Resolving]
